FAERS Safety Report 9184869 (Version 1)
Quarter: 2013Q1

REPORT INFORMATION
  Report Type: Spontaneous
  Country: US (occurrence: US)
  Receive Date: 20130325
  Receipt Date: 20130325
  Transmission Date: 20140127
  Serious: No
  Sender: FDA-Public Use
  Company Number: US-BRISTOL-MYERS SQUIBB COMPANY-16509523

PATIENT
  Age: 54 Year
  Sex: Female

DRUGS (3)
  1. ERBITUX [Suspect]
     Indication: COLON CANCER
  2. IRINOTECAN [Concomitant]
  3. 5-FLUOROURACIL [Concomitant]

REACTIONS (4)
  - Skin haemorrhage [Recovered/Resolved]
  - Erythema [Recovered/Resolved]
  - Acne [Recovered/Resolved]
  - Skin fissures [Recovered/Resolved]
